FAERS Safety Report 13128697 (Version 4)
Quarter: 2017Q1

REPORT INFORMATION
  Report Type: Spontaneous
  Country: CA (occurrence: CA)
  Receive Date: 20170119
  Receipt Date: 20170319
  Transmission Date: 20170428
  Serious: Yes (Other)
  Sender: FDA-Public Use
  Company Number: CA-ROCHE-1881532

PATIENT
  Sex: Male

DRUGS (1)
  1. ACTEMRA [Suspect]
     Active Substance: TOCILIZUMAB
     Indication: PRODUCT USED FOR UNKNOWN INDICATION
     Route: 042
     Dates: start: 20100623

REACTIONS (7)
  - Eye swelling [Unknown]
  - Micturition disorder [Unknown]
  - Pericarditis [Unknown]
  - Asthenia [Unknown]
  - Skin abrasion [Unknown]
  - Dizziness [Unknown]
  - Fall [Unknown]
